FAERS Safety Report 5110671-2 (Version None)
Quarter: 2006Q3

REPORT INFORMATION
  Report Type: 
  Country: None (occurrence: None)
  Receive Date: 20060921
  Receipt Date: 20060816
  Transmission Date: 20061208
  Serious: Yes (Disabling, Other)
  Sender: FDA-Public Use
  Company Number: US-MERCK-0608USA04243

PATIENT
  Age: 92 Year
  Sex: Female
  Weight: 45 kg

DRUGS (4)
  1. FOSAMAX [Suspect]
     Indication: OSTEOPOROSIS
     Route: 048
     Dates: start: 20030923, end: 20060522
  2. VASOTEC [Concomitant]
     Route: 065
  3. ASPIRIN [Concomitant]
     Route: 065
  4. HYDROCHLOROTHIAZIDE [Concomitant]
     Route: 065

REACTIONS (2)
  - OSTEOMYELITIS [None]
  - OSTEONECROSIS [None]
